FAERS Safety Report 12135800 (Version 1)
Quarter: 2016Q1

REPORT INFORMATION
  Report Type: Spontaneous
  Country: US (occurrence: US)
  Receive Date: 20160302
  Receipt Date: 20160302
  Transmission Date: 20160526
  Serious: Yes (Hospitalization)
  Sender: FDA-Public Use
  Company Number: US-BEH-2016059246

PATIENT
  Age: 28 Year
  Sex: Female
  Weight: 91.6 kg

DRUGS (2)
  1. HUMATE [Suspect]
     Active Substance: HUMAN COAGULATION FACTOR VIII/VON WILLEBRAND FACTOR COMPLEX
     Indication: VON WILLEBRAND^S DISEASE
     Dosage: TO PRESENT
     Route: 042
     Dates: start: 20160203
  2. OXACILIN [Concomitant]

REACTIONS (1)
  - Catheter placement [Unknown]
